FAERS Safety Report 18117070 (Version 2)
Quarter: 2020Q4

REPORT INFORMATION
  Report Type: Report from Study
  Country: US (occurrence: US)
  Receive Date: 20200805
  Receipt Date: 20201003
  Transmission Date: 20210113
  Serious: Yes (Hospitalization, Other)
  Sender: FDA-Public Use
  Company Number: NVSC2020US213631

PATIENT
  Sex: Male

DRUGS (1)
  1. ENTRESTO [Suspect]
     Active Substance: SACUBITRIL\VALSARTAN
     Indication: CARDIAC FAILURE
     Dosage: 50 MG, BID (24/26 MG)
     Route: 048
     Dates: start: 202003

REACTIONS (9)
  - Hypotension [Unknown]
  - Decreased activity [Unknown]
  - Dizziness [Unknown]
  - Fall [Unknown]
  - Fluid retention [Unknown]
  - Weight increased [Unknown]
  - Atrial fibrillation [Unknown]
  - Fluid overload [Unknown]
  - Palpitations [Unknown]
